FAERS Safety Report 21041835 (Version 6)
Quarter: 2022Q3

REPORT INFORMATION
  Report Type: Spontaneous
  Country: JP (occurrence: JP)
  Receive Date: 20220705
  Receipt Date: 20220927
  Transmission Date: 20221026
  Serious: Yes (Hospitalization, Other)
  Sender: FDA-Public Use
  Company Number: JP-MSD-M2022-25962

PATIENT
  Age: 22 Year
  Sex: Female

DRUGS (1)
  1. STROMECTOL [Suspect]
     Active Substance: IVERMECTIN
     Indication: Prophylaxis
     Dosage: 12 MILLIGRAM, QD
     Route: 048
     Dates: start: 20220627, end: 20220627

REACTIONS (22)
  - Hypoaesthesia [Recovering/Resolving]
  - Metabolic acidosis [Recovered/Resolved]
  - Hypophosphataemia [Recovered/Resolved]
  - Musculoskeletal stiffness [Recovering/Resolving]
  - Toxicity to various agents [Recovering/Resolving]
  - Hormone level abnormal [Unknown]
  - Hypoparathyroidism [Unknown]
  - Dyspnoea [Recovered/Resolved]
  - Muscular weakness [Recovered/Resolved]
  - Bradycardia [Recovered/Resolved]
  - Cyanosis [Recovered/Resolved]
  - Pyrexia [Recovered/Resolved]
  - Depressed level of consciousness [Recovered/Resolved]
  - Dizziness [Recovered/Resolved]
  - Loss of consciousness [Recovered/Resolved]
  - Somnolence [Recovered/Resolved]
  - Nausea [Recovering/Resolving]
  - Decreased appetite [Recovered/Resolved]
  - Atopy [Unknown]
  - Pruritus [Unknown]
  - Off label use [Unknown]
  - Overdose [Unknown]

NARRATIVE: CASE EVENT DATE: 20220601
